FAERS Safety Report 8812737 (Version 3)
Quarter: 2013Q3

REPORT INFORMATION
  Report Type: Report from Study
  Country: US (occurrence: US)
  Receive Date: 20120927
  Receipt Date: 20130725
  Transmission Date: 20140515
  Serious: Yes (Other)
  Sender: FDA-Public Use
  Company Number: US-ELI_LILLY_AND_COMPANY-US201206003565

PATIENT
  Age: 73 Year
  Sex: Female

DRUGS (6)
  1. TERIPARATIDE [Suspect]
     Indication: OSTEOPOROSIS
     Dosage: 20 UG, QD
     Dates: start: 20120531
  2. TERIPARATIDE [Suspect]
     Dosage: 20 UG, QD
     Dates: start: 201208
  3. TERIPARATIDE [Suspect]
     Dosage: 20 UG, QD
     Dates: end: 20121225
  4. SYNTHROID [Concomitant]
  5. VITAMIN D3 [Concomitant]
  6. CALCIUM [Concomitant]

REACTIONS (20)
  - Syncope [Recovered/Resolved]
  - Mass [Recovered/Resolved]
  - Injection site mass [Recovered/Resolved]
  - Faeces discoloured [Unknown]
  - Ear swelling [Recovered/Resolved]
  - Jaw disorder [Recovered/Resolved]
  - Ear discomfort [Recovered/Resolved]
  - Pain in jaw [Recovered/Resolved]
  - Ear pain [Recovered/Resolved]
  - Unevaluable event [Unknown]
  - Diarrhoea [Unknown]
  - Constipation [Recovered/Resolved]
  - Injection site pain [Unknown]
  - Intentional drug misuse [Recovered/Resolved]
  - Dizziness [Recovered/Resolved]
  - Alopecia [Not Recovered/Not Resolved]
  - Swelling face [Recovered/Resolved]
  - Paraesthesia [Recovered/Resolved]
  - Toothache [Recovered/Resolved]
  - Discomfort [Recovered/Resolved]
